FAERS Safety Report 7269505-2 (Version None)
Quarter: 2011Q1

REPORT INFORMATION
  Report Type: 
  Country: None (occurrence: None)
  Receive Date: 20110202
  Receipt Date: 20101130
  Transmission Date: 20110831
  Serious: Yes (Hospitalization)
  Sender: FDA-Public Use
  Company Number: US-BAYER-201026891NA

PATIENT
  Sex: Female
  Weight: 64.853 kg

DRUGS (7)
  1. YAZ [Suspect]
     Indication: ORAL CONTRACEPTION
     Dosage: UNK
     Route: 048
     Dates: start: 20071201, end: 20090401
  2. NSAID'S [Concomitant]
  3. AMOXICILLIN [Concomitant]
  4. IBUPROFEN [Concomitant]
  5. CLINDAMYCIN [Concomitant]
  6. ZOFRAN [Concomitant]
  7. PREVACID [Concomitant]

REACTIONS (6)
  - ABDOMINAL PAIN UPPER [None]
  - CHOLECYSTITIS [None]
  - NAUSEA [None]
  - ABDOMINAL TENDERNESS [None]
  - VOMITING [None]
  - CHOLELITHIASIS [None]
